FAERS Safety Report 22187955 (Version 1)
Quarter: 2023Q2

REPORT INFORMATION
  Report Type: Report from Study
  Country: MX (occurrence: MX)
  Receive Date: 20230408
  Receipt Date: 20230408
  Transmission Date: 20230722
  Serious: Yes (Other)
  Sender: FDA-Public Use
  Company Number: MX-002147023-NVSC2023MX081480

PATIENT
  Sex: Male
  Weight: 76 kg

DRUGS (1)
  1. ENTRESTO [Suspect]
     Active Substance: SACUBITRIL\VALSARTAN
     Indication: Cardiac disorder
     Dosage: 1 DOSAGE FORM, QD
     Route: 048
     Dates: start: 2022

REACTIONS (3)
  - Blindness [Unknown]
  - Deafness [Unknown]
  - Off label use [Unknown]

NARRATIVE: CASE EVENT DATE: 20220101
